FAERS Safety Report 18151309 (Version 1)
Quarter: 2020Q3

REPORT INFORMATION
  Report Type: Spontaneous
  Country: US (occurrence: US)
  Receive Date: 20200814
  Receipt Date: 20200814
  Transmission Date: 20201103
  Serious: No
  Sender: FDA-Public Use
  Company Number: None

PATIENT
  Age: 73 Year
  Sex: Male
  Weight: 76.3 kg

DRUGS (4)
  1. AMLODIPINE [Concomitant]
     Active Substance: AMLODIPINE BESYLATE
  2. LOSARTAN. [Concomitant]
     Active Substance: LOSARTAN
  3. CAPECITABINE. [Suspect]
     Active Substance: CAPECITABINE
     Indication: COLON CANCER
     Route: 048
     Dates: start: 20200324, end: 20200814
  4. FERROUS SULFATE. [Concomitant]
     Active Substance: FERROUS SULFATE

REACTIONS (3)
  - Fatigue [None]
  - Palmar-plantar erythrodysaesthesia syndrome [None]
  - Product intolerance [None]

NARRATIVE: CASE EVENT DATE: 20200814
